FAERS Safety Report 6980073-2 (Version None)
Quarter: 2010Q3

REPORT INFORMATION
  Report Type: 
  Country: None (occurrence: None)
  Receive Date: 20100914
  Receipt Date: 20100831
  Transmission Date: 20110219
  Serious: Yes (Hospitalization, Other)
  Sender: FDA-Public Use
  Company Number: CA-JNJFOC-20100903286

PATIENT
  Age: 43 Year
  Sex: Female

DRUGS (1)
  1. SODIUM/POTASSIUM PHOSPHATE [Suspect]
     Indication: COLONOSCOPY
     Dosage: 90 ML OF OSP THE EVENING BEFORE AND 140 ML OF FLEET PHOSPHOSODA BY ENEMA THAT MORNING
     Route: 065

REACTIONS (7)
  - ALKALOSIS [None]
  - BLOOD CALCIUM DECREASED [None]
  - BLOOD PHOSPHORUS INCREASED [None]
  - BLOOD SODIUM INCREASED [None]
  - ELECTROCARDIOGRAM QT PROLONGED [None]
  - HYPOAESTHESIA ORAL [None]
  - PARAESTHESIA [None]
